FAERS Safety Report 23259271 (Version 3)
Quarter: 2024Q4

REPORT INFORMATION
  Report Type: Spontaneous
  Country: CA (occurrence: CA)
  Receive Date: 20231204
  Receipt Date: 20241015
  Transmission Date: 20250114
  Serious: Yes (Other)
  Sender: ROCHE
  Company Number: CA-ROCHE-3466397

PATIENT
  Sex: Male

DRUGS (3)
  1. SOMATROPIN [Suspect]
     Active Substance: SOMATROPIN
     Indication: Short stature
     Route: 058
  2. SOMATROPIN [Suspect]
     Active Substance: SOMATROPIN
     Dosage: FORM: SOLUTION FOR INJECTION IN PRE-FILLED PEN
     Route: 058
  3. SOMATROPIN [Suspect]
     Active Substance: SOMATROPIN
     Dosage: FORM: SOLUTION FOR INJECTION IN PRE-FILLED PEN, THERAPY DURATION 126 DAYS.
     Route: 058

REACTIONS (1)
  - Tonsillar disorder [Unknown]
